FAERS Safety Report 21462763 (Version 1)
Quarter: 2022Q4

REPORT INFORMATION
  Report Type: Spontaneous
  Country: FR (occurrence: FR)
  Receive Date: 20221017
  Receipt Date: 20221017
  Transmission Date: 20230113
  Serious: Yes (Death, Hospitalization, Other)
  Sender: FDA-Public Use
  Company Number: None

PATIENT
  Age: 70 Year
  Sex: Female

DRUGS (17)
  1. GANCICLOVIR [Suspect]
     Active Substance: GANCICLOVIR
     Indication: Cytomegalovirus colitis
     Dosage: DAILY DOSE: 150 MILLIGRAM
     Route: 048
     Dates: start: 20220814
  2. GANCICLOVIR [Suspect]
     Active Substance: GANCICLOVIR
     Indication: Cytomegalovirus colitis
     Dosage: INCREASE DOSAGE OF GANCICLOVIR TO 300 MG IV/12 HOURS
     Route: 042
     Dates: start: 20220822
  3. ASPIRIN [Concomitant]
     Active Substance: ASPIRIN
     Dosage: ASPIRIN 75MG PDR BUV SACH
  4. KARDEGIC [Concomitant]
     Active Substance: ASPIRIN DL-LYSINE
     Dosage: 1 SACHET MIDI
  5. BISOPROLOL [Concomitant]
     Active Substance: BISOPROLOL
     Dosage: 1 TAB MORNING, 1 TAB EVENING (THAT IS TO SAY 2 TAB/D)?DAILY DOSE: 5 MILLIGRAM
  6. FOLIC ACID [Concomitant]
     Active Substance: FOLIC ACID
     Dosage: 5MG, 1 TAB MORNING?DAILY DOSE: 5 MILLIGRAM
  7. LANSOPRAZOLE [Concomitant]
     Active Substance: LANSOPRAZOLE
     Dosage: ORODISP 1 CPR MORNING?DAILY DOSE: 15 MILLIGRAM
     Route: 048
  8. AMLODIPINE BESYLATE [Concomitant]
     Active Substance: AMLODIPINE BESYLATE
     Dosage: 5 MG 1 TAB MORNING?DAILY DOSE: 5 MILLIGRAM
  9. PROGRAF [Concomitant]
     Active Substance: TACROLIMUS
     Dosage: RESUMPTION OF PROGRAF
     Dates: start: 20220906
  10. PROGRAF [Concomitant]
     Active Substance: TACROLIMUS
     Dosage: 1MG CAPSULE TACROLIMUS 2MG MORNING, 2MG BEDTIME (I.E. 4MG/D) AWAY FROM A MEAL (1 BEFORE OR 2 HOUR...
  11. CELLCEPT [Concomitant]
     Active Substance: MYCOPHENOLATE MOFETIL
     Dosage: 500MG, 1 TABLET MORNING, 1 TABLET EVENING?DAILY DOSE: 1000 MILLIGRAM
  12. BACTRIM [Concomitant]
     Active Substance: SULFAMETHOXAZOLE\TRIMETHOPRIM
     Dosage: TO BE TAKEN BY MOUTH. 1 TABLET MORNING WITH MEALS
     Route: 048
  13. TENOFOVIR DISOPROXIL [Concomitant]
     Active Substance: TENOFOVIR DISOPROXIL
     Dosage: 245MG TABLET 1 TABLET MORNING?DAILY DOSE: 245 MILLIGRAM
  14. ALBUTEROL [Concomitant]
     Active Substance: ALBUTEROL
     Dosage: 100 UG SUSP INHALATION SPRAY
  15. VENTOLIN [Concomitant]
     Active Substance: ALBUTEROL SULFATE
     Dosage: IF NEEDED 2 PUFFS PER DOSE. MAXIMUM PER 24 HOURS: 8 PUFFS
  16. GLYCOPYRRONIUM\INDACATEROL [Concomitant]
     Active Substance: GLYCOPYRRONIUM\INDACATEROL
     Dosage: INH GEL, 1 GEL MORNING
  17. FUROSEMIDE [Concomitant]
     Active Substance: FUROSEMIDE
     Dosage: FOR IMO
     Dates: start: 20220826

REACTIONS (8)
  - Febrile bone marrow aplasia [Fatal]
  - Leukopenia [Fatal]
  - Hypernatraemia [Unknown]
  - Acute kidney injury [Unknown]
  - Diarrhoea [Unknown]
  - Acute respiratory distress syndrome [Unknown]
  - Septic shock [Unknown]
  - Aspergillus infection [Unknown]

NARRATIVE: CASE EVENT DATE: 20220902
